FAERS Safety Report 5738264-4 (Version None)
Quarter: 2008Q2

REPORT INFORMATION
  Report Type: 
  Country: None (occurrence: None)
  Receive Date: 20080514
  Receipt Date: 20080506
  Transmission Date: 20081010
  Serious: Yes (Other)
  Sender: FDA-Public Use
  Company Number: CH-ABBOTT-08P-151-0450493-00

PATIENT
  Age: 68 Year
  Sex: Female

DRUGS (2)
  1. DEPAKENE [Suspect]
     Indication: BIPOLAR I DISORDER
     Route: 048
     Dates: start: 20070903, end: 20071201
  2. LORAZEPAM [Concomitant]
     Indication: BIPOLAR I DISORDER
     Route: 048
     Dates: start: 20070905

REACTIONS (3)
  - ALCOHOL USE [None]
  - HYPONATRAEMIA [None]
  - INAPPROPRIATE ANTIDIURETIC HORMONE SECRETION [None]
